FAERS Safety Report 9651391 (Version 2)
Quarter: 2014Q2

REPORT INFORMATION
  Report Type: Spontaneous
  Country: US (occurrence: US)
  Receive Date: 20131029
  Receipt Date: 20140507
  Transmission Date: 20141212
  Serious: Yes (Hospitalization)
  Sender: FDA-Public Use
  Company Number: US-B.I. PHARMACEUTICALS,INC./RIDGEFIELD-2013-BI-33711BP

PATIENT
  Age: 75 Year
  Sex: Male

DRUGS (9)
  1. PRADAXA [Suspect]
     Indication: ATRIAL FIBRILLATION
     Dosage: 300 MG
     Route: 065
     Dates: start: 20120108, end: 20120310
  2. PRADAXA [Suspect]
     Indication: ANTICOAGULANT THERAPY
  3. OSTEO BI-FLEX [Concomitant]
     Route: 065
  4. HYDROCODONE [Concomitant]
     Route: 065
  5. VITAMIN D3 [Concomitant]
     Route: 065
  6. ESTER-C [Concomitant]
     Route: 065
  7. VITAMIN B6 [Concomitant]
     Route: 065
  8. VITAMIN B12 [Concomitant]
     Route: 065
  9. METAMUCIL [Concomitant]
     Route: 065

REACTIONS (1)
  - Lower gastrointestinal haemorrhage [Unknown]
